FAERS Safety Report 7768914-2 (Version None)
Quarter: 2011Q3

REPORT INFORMATION
  Report Type: 
  Country: None (occurrence: None)
  Receive Date: 20110922
  Receipt Date: 20101216
  Transmission Date: 20111222
  Serious: No
  Sender: FDA-Public Use
  Company Number: US-ASTRAZENECA-2010SE59522

PATIENT
  Age: 64 Year
  Sex: Female
  Weight: 94.3 kg

DRUGS (1)
  1. SEROQUEL [Suspect]
     Indication: BIPOLAR DISORDER
     Route: 048

REACTIONS (5)
  - SLEEP DISORDER [None]
  - BLOOD GLUCOSE INCREASED [None]
  - IMPAIRED WORK ABILITY [None]
  - THERAPEUTIC RESPONSE UNEXPECTED [None]
  - WEIGHT INCREASED [None]
